FAERS Safety Report 8036751-X (Version None)
Quarter: 2012Q1

REPORT INFORMATION
  Report Type: 
  Country: None (occurrence: None)
  Receive Date: 20120111
  Receipt Date: 20120106
  Transmission Date: 20120608
  Serious: Yes (Death)
  Sender: FDA-Public Use
  Company Number: CA-CELGENEUS-028-21880-12010599

PATIENT
  Sex: Female

DRUGS (11)
  1. LYRICA [Concomitant]
     Dosage: 50 MILLIGRAM
     Route: 065
  2. ZOPICLONE [Concomitant]
     Dosage: 1.5 TABLET
     Route: 065
  3. REVLIMID [Suspect]
     Dosage: 15 MILLIGRAM
     Route: 048
  4. MAGNESIUM OXIDE [Concomitant]
     Dosage: 420 MILLIGRAM
     Route: 065
  5. DOCUSATE NA [Concomitant]
     Dosage: 100 MILLIGRAM
     Route: 065
  6. ATENOLOL [Concomitant]
     Dosage: 50 MILLIGRAM
     Route: 065
  7. DILAUDID [Concomitant]
     Dosage: 1-2 TABS
     Route: 065
  8. VALTREX [Concomitant]
     Dosage: 500 MILLIGRAM
     Route: 065
  9. DEXAMETHASONE TAB [Concomitant]
     Dosage: 40 MILLIGRAM
     Route: 065
  10. HYDROMORPHONE HCL [Concomitant]
     Dosage: 9 MILLIGRAM
     Route: 065
  11. FLOVENT [Concomitant]
     Dosage: 2 PUFFS
     Route: 065

REACTIONS (2)
  - MYOCARDIAL INFARCTION [None]
  - PNEUMONIA [None]
